FAERS Safety Report 5828346-0 (Version None)
Quarter: 2008Q3

REPORT INFORMATION
  Report Type: 
  Country: None (occurrence: None)
  Receive Date: 20080729
  Receipt Date: 20080729
  Transmission Date: 20090109
  Serious: Yes (Hospitalization)
  Sender: FDA-Public Use
  Company Number: None

PATIENT
  Age: 63 Year
  Sex: Male
  Weight: 92.95 kg

DRUGS (1)
  1. FLUOROURACIL [Suspect]
     Dosage: 8240 MG IV
     Route: 042
     Dates: start: 20080211, end: 20080212

REACTIONS (2)
  - CHEST PAIN [None]
  - VASOSPASM [None]
